FAERS Safety Report 9849615 (Version 1)
Quarter: 2013Q4

REPORT INFORMATION
  Report Type: Spontaneous
  Country: US (occurrence: None)
  Receive Date: 20131226
  Receipt Date: 20131226
  Transmission Date: 20140711
  Serious: Yes (Other)
  Sender: FDA-Public Use
  Company Number: PHEH2012US018998

PATIENT
  Age: 73 Year
  Sex: Female

DRUGS (5)
  1. AFINITOR (RAD) UNKNOWN [Suspect]
     Route: 048
     Dates: start: 20120910, end: 20120918
  2. AROMASIN [Suspect]
     Dosage: 20 MG, UNK
  3. PREDNISONE (PREDNISONE) [Concomitant]
  4. ONDANSETRON (ONDANSETRON) [Concomitant]
  5. CIPROFLOXACIN (CIPROFLOXACIN) [Concomitant]

REACTIONS (6)
  - Infective glossitis [None]
  - Eye inflammation [None]
  - Vomiting [None]
  - Stomatitis [None]
  - Nausea [None]
  - Pain [None]
